FAERS Safety Report 5164973-4 (Version None)
Quarter: 2006Q4

REPORT INFORMATION
  Report Type: 
  Country: None (occurrence: None)
  Receive Date: 20061127
  Receipt Date: 20061115
  Transmission Date: 20070319
  Serious: Yes (Hospitalization)
  Sender: FDA-Public Use
  Company Number: 06H-163-0311226-00

PATIENT
  Age: 1 Day
  Sex: Female
  Weight: 3.6288 kg

DRUGS (3)
  1. MORPHINE SULFATE INJ [Suspect]
     Dosage: MATERNAL EXPOSURE
     Dates: start: 20050831, end: 20050831
  2. FENTANYL [Concomitant]
  3. PITOCIN [Concomitant]

REACTIONS (5)
  - DRUG EXPOSURE DURING PREGNANCY [None]
  - DRUG WITHDRAWAL SYNDROME NEONATAL [None]
  - HAEMATOCHEZIA [None]
  - MYOCLONUS [None]
  - NEONATAL DISORDER [None]
